FAERS Safety Report 6786506-9 (Version None)
Quarter: 2010Q2

REPORT INFORMATION
  Report Type: 
  Country: None (occurrence: None)
  Receive Date: 20100623
  Receipt Date: 20100618
  Transmission Date: 20101027
  Serious: Yes (Other)
  Sender: FDA-Public Use
  Company Number: B0661506A

PATIENT
  Sex: Female

DRUGS (1)
  1. AUGMENTIN '125' [Suspect]
     Indication: TONSILLITIS
     Route: 048
     Dates: start: 20100501, end: 20100501

REACTIONS (3)
  - INCORRECT DRUG ADMINISTRATION DURATION [None]
  - PSORIASIS [None]
  - RASH MACULAR [None]
